FAERS Safety Report 11400795 (Version 1)
Quarter: 2015Q3

REPORT INFORMATION
  Report Type: Report from Study
  Country: DE (occurrence: DE)
  Receive Date: 20150820
  Receipt Date: 20150820
  Transmission Date: 20151125
  Serious: Yes (Death)
  Sender: FDA-Public Use
  Company Number: DE-ACTELION-A-NJ2015-122739

PATIENT
  Age: 78 Year
  Sex: Female

DRUGS (14)
  1. ALLOPURINOL. [Concomitant]
     Active Substance: ALLOPURINOL
  2. TORASEMID [Concomitant]
     Active Substance: TORSEMIDE
  3. OXYGEN. [Concomitant]
     Active Substance: OXYGEN
  4. METFORMIN [Concomitant]
     Active Substance: METFORMIN HYDROCHLORIDE
  5. HYDROCHLOROTHIAZID [Concomitant]
     Active Substance: HYDROCHLOROTHIAZIDE
  6. SILDENAFIL. [Concomitant]
     Active Substance: SILDENAFIL
  7. METOPROLOL SUCCINATE. [Concomitant]
     Active Substance: METOPROLOL SUCCINATE
  8. VENTAVIS [Suspect]
     Active Substance: ILOPROST
     Indication: PULMONARY ARTERIAL HYPERTENSION
     Dosage: 5 MCG, 6 XS DAILY
     Route: 055
     Dates: start: 20131120
  9. AMBRISENTAN [Concomitant]
     Active Substance: AMBRISENTAN
  10. PANTOPRAZOLE [Concomitant]
     Active Substance: PANTOPRAZOLE SODIUM
  11. KALINOR [Concomitant]
     Active Substance: POTASSIUM CITRATE
  12. SIMVASTATIN. [Concomitant]
     Active Substance: SIMVASTATIN
  13. IRON [Concomitant]
     Active Substance: IRON
  14. PHENPROCOUMON [Concomitant]
     Active Substance: PHENPROCOUMON

REACTIONS (1)
  - Death [Fatal]

NARRATIVE: CASE EVENT DATE: 201508
